FAERS Safety Report 7940523-1 (Version None)
Quarter: 2011Q4

REPORT INFORMATION
  Report Type: 
  Country: None (occurrence: None)
  Receive Date: 20111114
  Receipt Date: 20110601
  Transmission Date: 20120403
  Serious: Yes (Death)
  Sender: FDA-Public Use
  Company Number: 2011S1000384

PATIENT
  Age: 65 Year
  Sex: Male
  Weight: 65 kg

DRUGS (3)
  1. GENTAMICIN [Concomitant]
  2. VANCOMYCIN [Concomitant]
  3. CUBICIN [Suspect]
     Indication: ENTEROCOCCAL INFECTION
     Dosage: 9.6 MG/KG;Q24H;IV
     Route: 042

REACTIONS (2)
  - DEATH [None]
  - ANTIMICROBIAL SUSCEPTIBILITY TEST RESISTANT [None]
